FAERS Safety Report 19556526 (Version 1)
Quarter: 2021Q3

REPORT INFORMATION
  Report Type: Spontaneous
  Country: IN (occurrence: IN)
  Receive Date: 20210715
  Receipt Date: 20210715
  Transmission Date: 20211014
  Serious: Yes (Other)
  Sender: FDA-Public Use
  Company Number: IN-UNICHEM PHARMACEUTICALS (USA) INC-UCM202107-000648

PATIENT
  Age: 25 Year
  Sex: Female

DRUGS (5)
  1. COCAINE [Suspect]
     Active Substance: COCAINE
     Indication: INTENTIONAL OVERDOSE
     Dosage: UNKNOWN
  2. OXYCODONE [Concomitant]
     Active Substance: OXYCODONE
     Indication: INTENTIONAL OVERDOSE
     Dosage: UNKNOWN
  3. BUSPIRONE [Concomitant]
     Active Substance: BUSPIRONE HYDROCHLORIDE
     Indication: INTENTIONAL OVERDOSE
     Dosage: UNKNOWN
  4. LAMOTRIGINE. [Suspect]
     Active Substance: LAMOTRIGINE
     Indication: INTENTIONAL OVERDOSE
     Dosage: UNKNOWN
  5. ZOLPIDEM [Concomitant]
     Active Substance: ZOLPIDEM TARTRATE
     Indication: INTENTIONAL OVERDOSE
     Dosage: UNKNOWN

REACTIONS (3)
  - Multiple organ dysfunction syndrome [Recovered/Resolved]
  - Intentional overdose [Unknown]
  - Serotonin syndrome [Recovered/Resolved]
